FAERS Safety Report 6109481-9 (Version None)
Quarter: 2009Q1

REPORT INFORMATION
  Report Type: 
  Country: None (occurrence: None)
  Receive Date: 20090310
  Receipt Date: 20090227
  Transmission Date: 20090719
  Serious: Yes (Other)
  Sender: FDA-Public Use
  Company Number: CA-JNJFOC-20090300860

PATIENT
  Sex: Male
  Weight: 58 kg

DRUGS (4)
  1. REMICADE [Suspect]
     Dosage: 4TH INFUSION
     Route: 042
  2. REMICADE [Suspect]
     Dosage: 2 INFUSIONS
     Route: 042
  3. REMICADE [Suspect]
     Indication: CROHN'S DISEASE
     Route: 042
  4. PALAFER [Concomitant]

REACTIONS (6)
  - LIP OEDEMA [None]
  - LIP SWELLING [None]
  - LYMPHADENOPATHY [None]
  - OEDEMA MOUTH [None]
  - PARAESTHESIA ORAL [None]
  - SWELLING FACE [None]
